FAERS Safety Report 10433469 (Version 2)
Quarter: 2014Q4

REPORT INFORMATION
  Report Type: Report from Study
  Country: JP (occurrence: JP)
  Receive Date: 20140905
  Receipt Date: 20141010
  Transmission Date: 20150528
  Serious: Yes (Other)
  Sender: FDA-Public Use
  Company Number: JP-JNJFOC-20140902719

PATIENT
  Age: 76 Year
  Sex: Female
  Weight: 57 kg

DRUGS (14)
  1. TAKEPRON [Concomitant]
     Active Substance: LANSOPRAZOLE
     Route: 048
     Dates: start: 20140320
  2. AMLODIPINE [Concomitant]
     Active Substance: AMLODIPINE BESYLATE
     Route: 048
     Dates: start: 20140320
  3. RHUBARB. [Concomitant]
     Active Substance: RHUBARB
     Route: 048
     Dates: start: 20140320
  4. RIBAVIRIN. [Suspect]
     Active Substance: RIBAVIRIN
     Indication: CHRONIC HEPATITIS C
     Route: 048
     Dates: start: 20140320, end: 20140402
  5. ALFACALCIDOL [Concomitant]
     Active Substance: ALFACALCIDOL
     Route: 048
     Dates: start: 20140320
  6. ALENDRONATE [Concomitant]
     Active Substance: ALENDRONATE SODIUM
     Route: 048
     Dates: start: 20140320
  7. SOVRIAD [Suspect]
     Active Substance: SIMEPREVIR
     Indication: CHRONIC HEPATITIS C
     Route: 048
     Dates: start: 20140320, end: 20140618
  8. RIBAVIRIN. [Suspect]
     Active Substance: RIBAVIRIN
     Indication: CHRONIC HEPATITIS C
     Route: 048
     Dates: start: 20140418, end: 20140618
  9. PEGINTRON [Suspect]
     Active Substance: PEGINTERFERON ALFA-2B
     Indication: CHRONIC HEPATITIS C
     Route: 058
     Dates: start: 20140320, end: 20140612
  10. ATORVASTATIN [Concomitant]
     Active Substance: ATORVASTATIN
     Route: 048
     Dates: start: 20140320
  11. URSODEOXYCHOLIC ACID [Concomitant]
     Active Substance: URSODIOL
     Route: 048
     Dates: start: 20140320
  12. CELECOX [Concomitant]
     Active Substance: CELECOXIB
     Route: 048
     Dates: start: 20140320
  13. RIBAVIRIN. [Suspect]
     Active Substance: RIBAVIRIN
     Indication: CHRONIC HEPATITIS C
     Route: 048
     Dates: start: 20140403, end: 20140416
  14. DIOVAN [Concomitant]
     Active Substance: VALSARTAN
     Route: 048
     Dates: start: 20140320

REACTIONS (2)
  - Anaemia [Not Recovered/Not Resolved]
  - Drug ineffective [Unknown]

NARRATIVE: CASE EVENT DATE: 20140403
